FAERS Safety Report 8320367-1 (Version None)
Quarter: 2012Q2

REPORT INFORMATION
  Report Type: 
  Country: None (occurrence: None)
  Receive Date: 20120430
  Receipt Date: 20120423
  Transmission Date: 20120825
  Serious: No
  Sender: FDA-Public Use
  Company Number: US-PFIZER INC-2012101102

PATIENT
  Sex: Female
  Weight: 79 kg

DRUGS (3)
  1. PRAVASTATIN [Concomitant]
  2. LISINOPRIL [Concomitant]
     Dosage: UNK
  3. SUTENT [Suspect]
     Indication: METASTATIC RENAL CELL CARCINOMA
     Dosage: 50 MG, (2X25MG CAPSULES)
     Dates: start: 20120402

REACTIONS (10)
  - PRURITUS [None]
  - DRUG HYPERSENSITIVITY [None]
  - UPPER-AIRWAY COUGH SYNDROME [None]
  - FATIGUE [None]
  - DECREASED APPETITE [None]
  - ACNE [None]
  - YELLOW SKIN [None]
  - DYSPHONIA [None]
  - RASH [None]
  - DYSGEUSIA [None]
